FAERS Safety Report 18058793 (Version 3)
Quarter: 2020Q3

REPORT INFORMATION
  Report Type: Spontaneous
  Country: CN (occurrence: CN)
  Receive Date: 20200723
  Receipt Date: 20200903
  Transmission Date: 20201103
  Serious: Yes (Hospitalization)
  Sender: FDA-Public Use
  Company Number: CN-ROCHE-2646206

PATIENT
  Age: 44 Year
  Sex: Female
  Weight: 51.5 kg

DRUGS (2)
  1. HERCEPTIN [Suspect]
     Active Substance: TRASTUZUMAB
     Indication: BREAST CANCER
     Route: 041
     Dates: start: 20200509, end: 20200509
  2. DOCETAXEL. [Suspect]
     Active Substance: DOCETAXEL
     Indication: BREAST CANCER
     Route: 041
     Dates: start: 20200510, end: 20200510

REACTIONS (5)
  - Asthenia [Recovered/Resolved]
  - Mouth ulceration [Recovering/Resolving]
  - Maternal exposure during pregnancy [Unknown]
  - Myelosuppression [Recovering/Resolving]
  - Pyrexia [Recovered/Resolved]

NARRATIVE: CASE EVENT DATE: 20200514
